FAERS Safety Report 12765113 (Version 2)
Quarter: 2017Q3

REPORT INFORMATION
  Report Type: Spontaneous
  Country: US (occurrence: US)
  Receive Date: 20160921
  Receipt Date: 20170928
  Transmission Date: 20171127
  Serious: No
  Sender: FDA-Public Use
  Company Number: US-TEVA-675388USA

PATIENT
  Sex: Male

DRUGS (3)
  1. NEFAZODONE [Suspect]
     Active Substance: NEFAZODONE
     Dosage: 200 MILLIGRAM DAILY;
  2. NEFAZODONE [Suspect]
     Active Substance: NEFAZODONE
     Dosage: 50 MILLIGRAM DAILY; 50 MG  A DAY
  3. NEFAZODONE [Suspect]
     Active Substance: NEFAZODONE
     Indication: DEPRESSION
     Dosage: 200 MILLIGRAM DAILY;
     Dates: start: 1997

REACTIONS (8)
  - Feeling abnormal [Unknown]
  - Drug hypersensitivity [Unknown]
  - Withdrawal syndrome [Unknown]
  - Malaise [Unknown]
  - Eye disorder [Recovered/Resolved]
  - Pain [Recovered/Resolved]
  - Insomnia [Unknown]
  - Dysgeusia [Recovered/Resolved]
